FAERS Safety Report 8609132-5 (Version None)
Quarter: 2012Q3

REPORT INFORMATION
  Report Type: 
  Country: None (occurrence: None)
  Receive Date: 20120808
  Receipt Date: 20120731
  Transmission Date: 20120928
  Serious: Yes (Disabling)
  Sender: FDA-Public Use
  Company Number: 2012-002797

PATIENT
  Age: 62 Year
  Sex: Female

DRUGS (1)
  1. ACTONEL [Suspect]
     Dosage: 1 TABLET PER WEEK, ORAL
     Route: 048
     Dates: start: 20110211, end: 20120529

REACTIONS (7)
  - MYALGIA [None]
  - FATIGUE [None]
  - DYSPEPSIA [None]
  - PAIN IN EXTREMITY [None]
  - DRY THROAT [None]
  - DRY MOUTH [None]
  - INSOMNIA [None]
